FAERS Safety Report 7704477-5 (Version None)
Quarter: 2011Q3

REPORT INFORMATION
  Report Type: 
  Country: None (occurrence: None)
  Receive Date: 20110823
  Receipt Date: 20110809
  Transmission Date: 20111222
  Serious: Yes (Hospitalization)
  Sender: FDA-Public Use
  Company Number: IE-GENENTECH-323166

PATIENT
  Sex: Male

DRUGS (1)
  1. RANIBIZUMAB [Suspect]
     Indication: AGE-RELATED MACULAR DEGENERATION
     Dosage: 50 A?L, UNK
     Route: 031
     Dates: start: 20090611

REACTIONS (2)
  - RETINAL PIGMENT EPITHELIAL TEAR [None]
  - RETINAL HAEMORRHAGE [None]
